FAERS Safety Report 14978206 (Version 2)
Quarter: 2018Q3

REPORT INFORMATION
  Report Type: Spontaneous
  Country: US (occurrence: US)
  Receive Date: 20180606
  Receipt Date: 20180827
  Transmission Date: 20181010
  Serious: Yes (Other)
  Sender: FDA-Public Use
  Company Number: US-SA-2018SA143926

PATIENT
  Age: 51 Year
  Sex: Female
  Weight: 61 kg

DRUGS (11)
  1. TAXOTERE [Suspect]
     Active Substance: DOCETAXEL
     Dosage: 190 MG, Q3W
     Route: 042
     Dates: start: 20041124, end: 20041124
  2. TAXOTERE [Suspect]
     Active Substance: DOCETAXEL
     Indication: BREAST CANCER FEMALE
     Dosage: 190 MG, Q3W
     Route: 042
     Dates: start: 20040922, end: 20040922
  3. NEOSAR [Concomitant]
     Active Substance: CYCLOPHOSPHAMIDE
  4. ADRIAMYCIN [Concomitant]
     Active Substance: DOXORUBICIN HYDROCHLORIDE
     Dosage: UNK
     Dates: start: 20040702, end: 20040901
  5. NEULASTA [Concomitant]
     Active Substance: PEGFILGRASTIM
  6. DECADRON [DEXAMETHASONE ACETATE] [Concomitant]
  7. CYTOXAN [Concomitant]
     Active Substance: CYCLOPHOSPHAMIDE
     Dosage: UNK
     Dates: start: 20040702, end: 20040901
  8. ALOXI [Concomitant]
     Active Substance: PALONOSETRON HYDROCHLORIDE
  9. ARANESP [Concomitant]
     Active Substance: DARBEPOETIN ALFA
  10. DOXIL [DOXYCYCLINE HYDROCHLORIDE] [Concomitant]
  11. DEXAMETHASONE. [Concomitant]
     Active Substance: DEXAMETHASONE

REACTIONS (1)
  - Alopecia [Recovering/Resolving]

NARRATIVE: CASE EVENT DATE: 20050501
